FAERS Safety Report 10196228 (Version 1)
Quarter: 2014Q2

REPORT INFORMATION
  Report Type: Spontaneous
  Country: IT (occurrence: None)
  Receive Date: 20140520
  Receipt Date: 20140520
  Transmission Date: 20141212
  Serious: Yes (Hospitalization)
  Sender: FDA-Public Use
  Company Number: B0962899A

PATIENT
  Sex: Male

DRUGS (8)
  1. AMOXICILLIN TRIHYDRATE + POTASSIUM CLAVULANATE [Suspect]
     Indication: PRODUCT USED FOR UNKNOWN INDICATION
  2. CEFTAZIDIME SODIUM [Suspect]
     Indication: PRODUCT USED FOR UNKNOWN INDICATION
  3. AMIKACIN [Suspect]
     Indication: PNEUMOCOCCAL SEPSIS
  4. AMPICILLIN TRIHYDRATE [Suspect]
     Indication: PNEUMOCOCCAL SEPSIS
  5. BECONASE [Suspect]
     Indication: PNEUMONITIS
     Dosage: SIX TIMES PER DAY
     Route: 055
  6. TEICOPLANIN [Suspect]
     Indication: PRODUCT USED FOR UNKNOWN INDICATION
  7. NITRIC OXIDE [Concomitant]
  8. SALBUTAMOL SULPHATE [Concomitant]

REACTIONS (2)
  - Candida pneumonia [None]
  - Drug ineffective [None]
